FAERS Safety Report 23693552 (Version 6)
Quarter: 2024Q2

REPORT INFORMATION
  Report Type: Spontaneous
  Country: JP (occurrence: JP)
  Receive Date: 20240401
  Receipt Date: 20240529
  Transmission Date: 20240715
  Serious: Yes (Hospitalization, Disabling, Other)
  Sender: FDA-Public Use
  Company Number: JP-ARGENX-2024-ARGX-JP000747AA

PATIENT

DRUGS (6)
  1. VYVGART [Suspect]
     Active Substance: EFGARTIGIMOD ALFA-FCAB
     Indication: Myasthenia gravis
     Dosage: UNK
     Route: 042
     Dates: start: 20240125, end: 20240215
  2. VYVGART [Suspect]
     Active Substance: EFGARTIGIMOD ALFA-FCAB
     Dosage: UNK
     Route: 042
     Dates: start: 20240308, end: 20240329
  3. VYVGART [Suspect]
     Active Substance: EFGARTIGIMOD ALFA-FCAB
     Dosage: UNK
     Route: 042
     Dates: end: 20240426
  4. VYVGART [Suspect]
     Active Substance: EFGARTIGIMOD ALFA-FCAB
     Dosage: UNK
     Route: 042
     Dates: end: 20240510
  5. CORTRIL [Suspect]
     Active Substance: HYDROCORTISONE
     Indication: Product used for unknown indication
     Dosage: 10 MG IN THE MORNING, 5 MG AT NIGHT
     Route: 065
  6. AMLODIPINE [Concomitant]
     Active Substance: AMLODIPINE BESYLATE
     Indication: Hypertension
     Dosage: UNK
     Route: 048

REACTIONS (55)
  - Bulbar palsy [Recovering/Resolving]
  - Amyotrophic lateral sclerosis [Unknown]
  - Arrhythmia [Unknown]
  - Muscle spasms [Unknown]
  - Inclusion body myositis [Unknown]
  - Pancreatic enlargement [Recovering/Resolving]
  - Radiculopathy [Recovering/Resolving]
  - Hiccups [Unknown]
  - Muscle spasms [Unknown]
  - Pyrexia [Recovered/Resolved]
  - Abdominal distension [Unknown]
  - Hypoaesthesia [Unknown]
  - Muscle spasms [Unknown]
  - Feeling abnormal [Unknown]
  - Tongue spasm [Unknown]
  - Palpitations [Unknown]
  - Eyelid ptosis [Recovering/Resolving]
  - Palpitations [Unknown]
  - Dyspnoea [Unknown]
  - Anxiety [Unknown]
  - Dyspnoea [Unknown]
  - Myasthenia gravis [Unknown]
  - Electromyogram abnormal [Unknown]
  - Blood glucose abnormal [Unknown]
  - Dysphagia [Recovering/Resolving]
  - Diplopia [Recovering/Resolving]
  - Eyelid ptosis [Unknown]
  - Dyspnoea [Unknown]
  - Dysphagia [Unknown]
  - Muscular weakness [Unknown]
  - Muscle spasms [Unknown]
  - Chest discomfort [Unknown]
  - Dysphonia [Unknown]
  - Dysphagia [Unknown]
  - Dyspnoea [Unknown]
  - Dysstasia [Unknown]
  - Joint stiffness [Unknown]
  - Tongue atrophy [Unknown]
  - Muscle spasms [Unknown]
  - Palpitations [Unknown]
  - Blood pressure increased [Unknown]
  - Language disorder [Unknown]
  - Dyspnoea [Unknown]
  - Neuromyotonia [Unknown]
  - Muscle spasms [Unknown]
  - Blood glucose decreased [Unknown]
  - Salivary hypersecretion [Unknown]
  - Muscle spasms [Unknown]
  - General physical health deterioration [Unknown]
  - Muscle spasms [Unknown]
  - Dyspnoea [Unknown]
  - Dysphagia [Unknown]
  - Musculoskeletal stiffness [Unknown]
  - Tongue disorder [Unknown]
  - Wrong technique in product usage process [Unknown]

NARRATIVE: CASE EVENT DATE: 20240108
